FAERS Safety Report 21742076 (Version 1)
Quarter: 2022Q4

REPORT INFORMATION
  Report Type: Spontaneous
  Country: TW (occurrence: TW)
  Receive Date: 20221216
  Receipt Date: 20221216
  Transmission Date: 20230113
  Serious: Yes (Death, Hospitalization, Other)
  Sender: FDA-Public Use
  Company Number: TW-MLMSERVICE-20221118-3930174-1

PATIENT
  Age: 42 Year
  Sex: Male

DRUGS (12)
  1. METHYLPREDNISOLONE SODIUM SUCCINATE [Suspect]
     Active Substance: METHYLPREDNISOLONE SODIUM SUCCINATE
     Indication: Stevens-Johnson syndrome
     Dosage: DOSE EQUIVALENT TO 1.2-2.6 MG/KG OF PREDNISONE PER DAY
     Route: 042
  2. METHYLPREDNISOLONE SODIUM SUCCINATE [Suspect]
     Active Substance: METHYLPREDNISOLONE SODIUM SUCCINATE
     Indication: Vanishing bile duct syndrome
     Dosage: DOSE EQUIVALENT OF 2.6 MG/KG OF PREDNISONE PER DAY
     Route: 042
  3. MYCOPHENOLATE MOFETIL [Suspect]
     Active Substance: MYCOPHENOLATE MOFETIL
     Indication: Vanishing bile duct syndrome
     Dosage: 250 MG, 2X/DAY (FREQ:12 H)
  4. MYCOPHENOLATE MOFETIL [Suspect]
     Active Substance: MYCOPHENOLATE MOFETIL
     Dosage: 750 MG, 2X/DAY (FREQ:12 H)
  5. ACETAMINOPHEN [Concomitant]
     Active Substance: ACETAMINOPHEN
     Indication: Muscular weakness
     Dosage: UNK
  6. ACETAMINOPHEN [Concomitant]
     Active Substance: ACETAMINOPHEN
     Indication: Oropharyngeal pain
  7. ACETAMINOPHEN [Concomitant]
     Active Substance: ACETAMINOPHEN
     Indication: Malaise
  8. ACETAMINOPHEN [Concomitant]
     Active Substance: ACETAMINOPHEN
     Indication: Pyrexia
  9. FAMOTIDINE [Concomitant]
     Active Substance: FAMOTIDINE
     Indication: Muscular weakness
     Dosage: UNK
  10. FAMOTIDINE [Concomitant]
     Active Substance: FAMOTIDINE
     Indication: Pyrexia
  11. FAMOTIDINE [Concomitant]
     Active Substance: FAMOTIDINE
     Indication: Malaise
  12. FAMOTIDINE [Concomitant]
     Active Substance: FAMOTIDINE
     Indication: Oropharyngeal pain

REACTIONS (4)
  - Wound haemorrhage [Fatal]
  - Cytomegalovirus infection [Unknown]
  - General physical health deterioration [Unknown]
  - Impaired healing [Unknown]
